FAERS Safety Report 10679189 (Version 1)
Quarter: 2014Q4

REPORT INFORMATION
  Report Type: Spontaneous
  Country: DE (occurrence: DE)
  Receive Date: 20141229
  Receipt Date: 20141229
  Transmission Date: 20150529
  Serious: Yes (Life-Threatening, Hospitalization)
  Sender: FDA-Public Use
  Company Number: DE-TEVA-530664GER

PATIENT
  Age: 45 Year
  Sex: Male

DRUGS (4)
  1. QUININE [Suspect]
     Active Substance: QUININE
     Indication: CEREBRAL MALARIA
     Dosage: LOADING DOSE: 16.4 MG/KG
     Route: 042
  2. CLINDAMYCIN [Suspect]
     Active Substance: CLINDAMYCIN\CLINDAMYCIN PHOSPHATE
     Indication: PLASMODIUM FALCIPARUM INFECTION
  3. CLINDAMYCIN [Suspect]
     Active Substance: CLINDAMYCIN\CLINDAMYCIN PHOSPHATE
     Indication: CEREBRAL MALARIA
     Route: 048
  4. QUININE [Suspect]
     Active Substance: QUININE
     Indication: PLASMODIUM FALCIPARUM INFECTION
     Dosage: 24.6 MG/KG DAILY;
     Route: 042

REACTIONS (4)
  - Pneumothorax [Recovered/Resolved]
  - Respiratory failure [Recovered/Resolved]
  - Bullous lung disease [Recovered/Resolved]
  - Eosinophilic pneumonia [Recovered/Resolved]
